FAERS Safety Report 6381138-9 (Version None)
Quarter: 2009Q3

REPORT INFORMATION
  Report Type: 
  Country: None (occurrence: None)
  Receive Date: 20090929
  Receipt Date: 20090925
  Transmission Date: 20100115
  Serious: Yes (Other)
  Sender: FDA-Public Use
  Company Number: BR-TEVA-210462USA

PATIENT
  Sex: Female

DRUGS (1)
  1. MARVELON [Suspect]
     Indication: CONTRACEPTION
     Route: 048
     Dates: start: 20060101

REACTIONS (3)
  - CORNEAL OEDEMA [None]
  - OCULOGYRIC CRISIS [None]
  - VISION BLURRED [None]
